FAERS Safety Report 15997717 (Version 8)
Quarter: 2019Q4

REPORT INFORMATION
  Report Type: Spontaneous
  Country: FR (occurrence: FR)
  Receive Date: 20190222
  Receipt Date: 20191030
  Transmission Date: 20200122
  Serious: Yes (Death, Other)
  Sender: FDA-Public Use
  Company Number: FR-009507513-1902FRA006790

PATIENT
  Age: 58 Year
  Sex: Male
  Weight: 74 kg

DRUGS (7)
  1. CIFLOX (CIPROFLOXACIN) [Suspect]
     Active Substance: CIPROFLOXACIN
     Indication: BACTERIAL INFECTION
     Dosage: 1 DOSAGE FORM, 1 DAY
     Route: 048
     Dates: start: 20190204
  2. DIFFU-K [Suspect]
     Active Substance: POTASSIUM CHLORIDE
     Indication: HYPOKALAEMIA
     Dosage: 3 DOSAGE FORM, QD
     Route: 048
     Dates: start: 20190203
  3. TAZOCILLINE [Suspect]
     Active Substance: PIPERACILLIN SODIUM\TAZOBACTAM SODIUM
     Indication: BACTERIAL INFECTION
     Dosage: (STRENGTH 4GRAM/500 MILLIGRAM), 2 DF, QD
     Route: 042
     Dates: start: 20190204
  4. PROCORALAN [Suspect]
     Active Substance: IVABRADINE
     Indication: PRODUCT USED FOR UNKNOWN INDICATION
     Dosage: UNK
     Route: 048
  5. BISOCE [Concomitant]
     Active Substance: BISOPROLOL
     Dosage: UNK
     Route: 048
  6. NOXAFIL [Suspect]
     Active Substance: POSACONAZOLE
     Indication: ANTIFUNGAL PROPHYLAXIS
     Dosage: 3 DOSAGE FORM, QD
     Route: 048
     Dates: start: 20190201
  7. DAPTOMYCIN. [Suspect]
     Active Substance: DAPTOMYCIN
     Indication: BACTERIAL INFECTION
     Dosage: 500 MILLIGRAM, QOD
     Route: 042
     Dates: start: 20190202

REACTIONS (1)
  - Sudden death [Fatal]

NARRATIVE: CASE EVENT DATE: 20190206
